FAERS Safety Report 9796491 (Version 2)
Quarter: 2014Q1

REPORT INFORMATION
  Report Type: Spontaneous
  Country: JP (occurrence: JP)
  Receive Date: 20140103
  Receipt Date: 20140122
  Transmission Date: 20141002
  Serious: Yes (Other)
  Sender: FDA-Public Use
  Company Number: JP-GLAXOSMITHKLINE-B0950898A

PATIENT
  Age: 59 Year
  Sex: Female

DRUGS (14)
  1. FLUTIDE ROTADISK 100 [Suspect]
     Indication: ASTHMA
     Dosage: 10MCG PER DAY
     Route: 055
     Dates: start: 20060227
  2. FLUTIDE ROTADISK 100 [Suspect]
     Indication: ASTHMA
     Route: 055
     Dates: start: 2007, end: 20131220
  3. ZYRTEC [Concomitant]
     Indication: ASTHMA
     Dosage: 2MG TWICE PER DAY
     Route: 048
     Dates: start: 2003, end: 20130704
  4. ZYRTEC [Concomitant]
     Indication: ASTHMA
     Dosage: 2MG TWICE PER DAY
     Route: 048
     Dates: start: 20130926, end: 20131220
  5. XYZAL [Concomitant]
     Indication: ASTHMA
     Route: 048
     Dates: start: 20130705, end: 20130926
  6. SINGULAIR [Concomitant]
     Indication: ASTHMA
     Dosage: .5MG TWICE PER DAY
     Route: 048
  7. PULMICORT [Concomitant]
     Indication: ASTHMA
     Route: 055
     Dates: start: 201201, end: 201203
  8. PULMICORT [Concomitant]
     Indication: ASTHMA
     Route: 055
     Dates: start: 20130430, end: 20130430
  9. PULMICORT [Concomitant]
     Indication: ASTHMA
     Route: 055
     Dates: start: 20130625, end: 20130627
  10. PULMICORT [Concomitant]
     Indication: ASTHMA
     Route: 055
     Dates: start: 20130630
  11. CLARITH [Concomitant]
     Indication: ASTHMA
     Route: 048
     Dates: start: 201210, end: 201210
  12. CLARITH [Concomitant]
     Indication: ASTHMA
     Route: 048
     Dates: start: 20130725, end: 201309
  13. CLARITH [Concomitant]
     Indication: ASTHMA
     Route: 048
     Dates: start: 201310, end: 20131119
  14. MUCOSOLVAN [Concomitant]
     Route: 048
     Dates: start: 199905

REACTIONS (10)
  - Arthralgia [Recovering/Resolving]
  - Gait disturbance [Recovering/Resolving]
  - Pharyngeal ulceration [Recovered/Resolved]
  - Pharyngeal ulceration [Recovered/Resolved]
  - Pharyngeal haemorrhage [Recovering/Resolving]
  - Oesophagitis [Unknown]
  - Gastritis [Unknown]
  - Obstructive airways disorder [Unknown]
  - Throat irritation [Recovering/Resolving]
  - Oropharyngeal pain [Recovering/Resolving]
